FAERS Safety Report 7040000-9 (Version None)
Quarter: 2010Q4

REPORT INFORMATION
  Report Type: 
  Country: None (occurrence: None)
  Receive Date: 20101012
  Receipt Date: 20100303
  Transmission Date: 20110411
  Serious: No
  Sender: FDA-Public Use
  Company Number: US-PFIZER INC-2010027181

PATIENT
  Sex: Male

DRUGS (1)
  1. TERRAMYCIN V CAP [Suspect]

REACTIONS (1)
  - URTICARIA [None]
